FAERS Safety Report 9456182 (Version 2)
Quarter: 2013Q4

REPORT INFORMATION
  Report Type: Spontaneous
  Country: FR (occurrence: FR)
  Receive Date: 20130813
  Receipt Date: 20131202
  Transmission Date: 20140711
  Serious: Yes (Other)
  Sender: FDA-Public Use
  Company Number: FR-SANOFI-AVENTIS-2013SA078667

PATIENT
  Age: 61 Year
  Sex: Male

DRUGS (3)
  1. COAPROVEL [Suspect]
     Indication: HYPERTENSION
     Dosage: DOSE:1 UNIT(S)
     Route: 048
     Dates: start: 20101120, end: 201306
  2. APROVEL [Concomitant]
     Indication: HYPERTENSION
     Route: 048
     Dates: end: 20101120
  3. INEGY [Concomitant]
     Dates: end: 2012

REACTIONS (2)
  - Eczema [Recovered/Resolved]
  - Pruritus [Recovered/Resolved]
